FAERS Safety Report 19077043 (Version 1)
Quarter: 2021Q1

REPORT INFORMATION
  Report Type: Spontaneous
  Country: US (occurrence: US)
  Receive Date: 20210330
  Receipt Date: 20210330
  Transmission Date: 20210420
  Serious: Yes (Other)
  Sender: FDA-Public Use
  Company Number: None

PATIENT
  Age: 16 Year
  Sex: Male
  Weight: 81 kg

DRUGS (2)
  1. EQUATE SUNSCREEN SPF 50 KIDS BROAD SPECTRUM [Suspect]
     Active Substance: TITANIUM DIOXIDE\ZINC OXIDE
     Indication: PROPHYLAXIS AGAINST SOLAR RADIATION
     Route: 061
     Dates: start: 20210323, end: 20210323
  2. ACCUTANE [Concomitant]
     Active Substance: ISOTRETINOIN

REACTIONS (4)
  - Sunburn [None]
  - Suspected product quality issue [None]
  - Skin exfoliation [None]
  - Pain [None]

NARRATIVE: CASE EVENT DATE: 20210323
